FAERS Safety Report 12266379 (Version 4)
Quarter: 2016Q2

REPORT INFORMATION
  Report Type: Spontaneous
  Country: IT (occurrence: IT)
  Receive Date: 20160413
  Receipt Date: 20160618
  Transmission Date: 20160815
  Serious: Yes (Hospitalization)
  Sender: FDA-Public Use
  Company Number: IT-009507513-1604ITA008020

PATIENT
  Age: 50 Year
  Sex: Male
  Weight: 64 kg

DRUGS (11)
  1. RANITIDINE HYDROCHLORIDE. [Concomitant]
     Active Substance: RANITIDINE HYDROCHLORIDE
     Dosage: UNK
     Route: 048
  2. VIEKIRAX [Suspect]
     Active Substance: OMBITASVIR\PARITAPREVIR\RITONAVIR
     Indication: CHRONIC HEPATITIS C
     Dosage: 2 TABLETS DAILY
     Route: 048
     Dates: start: 20151117, end: 20160324
  3. INDERAL [Concomitant]
     Active Substance: PROPRANOLOL HYDROCHLORIDE
  4. TORSEMIDE. [Concomitant]
     Active Substance: TORSEMIDE
     Indication: ASCITES
     Dosage: UNK
     Route: 048
  5. EXVIERA [Suspect]
     Active Substance: DASABUVIR
     Indication: CHRONIC HEPATITIS C
     Dosage: 500 MG, DAILY
     Route: 048
     Dates: start: 20151117, end: 20160324
  6. LUVION (CANRENONE) [Concomitant]
     Active Substance: CANRENONE
     Dosage: UNK
     Route: 048
  7. PORTOLAC [Concomitant]
     Active Substance: LACTITOL
     Dosage: STRENGTH: 66.7G/100 ML
     Route: 048
  8. REBETOL [Suspect]
     Active Substance: RIBAVIRIN
     Indication: CHRONIC HEPATITIS C
     Dosage: DOSE: 1000 MG, DAILY
     Route: 048
     Dates: start: 20151117, end: 20160324
  9. VIEKIRAX [Suspect]
     Active Substance: OMBITASVIR\PARITAPREVIR\RITONAVIR
     Dosage: 2 TABLETS DAILY
     Route: 048
     Dates: start: 20160331
  10. EXVIERA [Suspect]
     Active Substance: DASABUVIR
     Dosage: 500 MG, DAILY
     Route: 048
     Dates: start: 20160331
  11. METHADONE HYDROCHLORIDE. [Concomitant]
     Active Substance: METHADONE HYDROCHLORIDE

REACTIONS (1)
  - Duodenal ulcer haemorrhage [Unknown]

NARRATIVE: CASE EVENT DATE: 20160325
